FAERS Safety Report 4269085-X (Version None)
Quarter: 2004Q1

REPORT INFORMATION
  Report Type: 
  Country: None (occurrence: None)
  Receive Date: 20040109
  Receipt Date: 20031224
  Transmission Date: 20041129
  Serious: Yes (Hospitalization)
  Sender: FDA-Public Use
  Company Number: ATO-03-0779

PATIENT
  Age: 61 Year
  Sex: Male

DRUGS (1)
  1. TRISENOX [Suspect]
     Indication: ACUTE PROMYELOCYTIC LEUKAEMIA
     Dosage: 30-35 DOSES, IVI
     Route: 042

REACTIONS (1)
  - BONE MARROW NECROSIS [None]
